FAERS Safety Report 7382040-6 (Version None)
Quarter: 2011Q1

REPORT INFORMATION
  Report Type: 
  Country: None (occurrence: None)
  Receive Date: 20110329
  Receipt Date: 20110302
  Transmission Date: 20110831
  Serious: No
  Sender: FDA-Public Use
  Company Number: US-B.I. PHARMACEUTICALS,INC./RIDGEFIELD-2011-BP-03500BP

PATIENT
  Sex: Female

DRUGS (4)
  1. HYDROCHLOROTHIAZIDE [Concomitant]
     Dates: end: 20110118
  2. NATTOKINASE [Concomitant]
  3. PRADAXA [Suspect]
     Indication: ATRIAL FIBRILLATION
     Dosage: 300 MG
     Route: 048
     Dates: start: 20110120
  4. RIFAMPIN [Concomitant]
     Dates: end: 20110303

REACTIONS (6)
  - OEDEMA PERIPHERAL [None]
  - JOINT SWELLING [None]
  - BLOOD PRESSURE INCREASED [None]
  - ERUCTATION [None]
  - FLUSHING [None]
  - FLATULENCE [None]
